FAERS Safety Report 21212871 (Version 1)
Quarter: 2022Q3

REPORT INFORMATION
  Report Type: Spontaneous
  Country: US (occurrence: US)
  Receive Date: 20220815
  Receipt Date: 20220815
  Transmission Date: 20221027
  Serious: No
  Sender: FDA-Public Use
  Company Number: US-PFIZER INC-202201054216

PATIENT
  Sex: Female

DRUGS (1)
  1. PAXLOVID [Suspect]
     Active Substance: NIRMATRELVIR\RITONAVIR
     Indication: COVID-19 treatment
     Dosage: UNK
     Dates: start: 20220810

REACTIONS (5)
  - Aptyalism [Unknown]
  - Dry mouth [Unknown]
  - Taste disorder [Unknown]
  - Intentional dose omission [Unknown]
  - Cough [Unknown]

NARRATIVE: CASE EVENT DATE: 20220810
